FAERS Safety Report 9235667 (Version 2)
Quarter: 2013Q2

REPORT INFORMATION
  Report Type: Spontaneous
  Country: JP (occurrence: JP)
  Receive Date: 20130417
  Receipt Date: 20130425
  Transmission Date: 20140414
  Serious: Yes (Other)
  Sender: FDA-Public Use
  Company Number: JP-JNJFOC-20130407657

PATIENT
  Age: 75 Year
  Sex: Male

DRUGS (4)
  1. TRAMCET [Suspect]
     Indication: ANALGESIC THERAPY
     Route: 048
     Dates: start: 201304, end: 201304
  2. NAUZELIN [Concomitant]
     Indication: NAUSEA
     Route: 065
  3. ADOAIR [Concomitant]
     Indication: ASTHMA
     Route: 055
  4. LOXONIN [Concomitant]
     Indication: ANALGESIC THERAPY
     Route: 065

REACTIONS (1)
  - Asthma [Recovering/Resolving]
